FAERS Safety Report 22597400 (Version 1)
Quarter: 2023Q2

REPORT INFORMATION
  Report Type: Spontaneous
  Country: CA (occurrence: CA)
  Receive Date: 20230614
  Receipt Date: 20230614
  Transmission Date: 20230722
  Serious: Yes (Other)
  Sender: FDA-Public Use
  Company Number: CA-JNJFOC-20230618411

PATIENT
  Age: 27 Year
  Sex: Female

DRUGS (3)
  1. RISPERDAL [Interacting]
     Active Substance: RISPERIDONE
     Indication: Bipolar disorder
     Route: 065
  2. LITHIUM [Interacting]
     Active Substance: LITHIUM
     Indication: Mania
     Route: 065
  3. QUETIAPINE FUMARATE [Interacting]
     Active Substance: QUETIAPINE FUMARATE
     Indication: Insomnia
     Route: 065

REACTIONS (3)
  - Diabetes insipidus [Recovered/Resolved]
  - Nocturia [Recovered/Resolved]
  - Drug interaction [Recovered/Resolved]
